FAERS Safety Report 7595381-4 (Version None)
Quarter: 2011Q3

REPORT INFORMATION
  Report Type: 
  Country: None (occurrence: None)
  Receive Date: 20110707
  Receipt Date: 20110628
  Transmission Date: 20111222
  Serious: Yes (Hospitalization, Other)
  Sender: FDA-Public Use
  Company Number: US-JNJFOC-20100506462

PATIENT
  Sex: Male
  Weight: 14.06 kg

DRUGS (5)
  1. CHILDREN'S TYLENOL SUSPENSION [Suspect]
     Indication: PYREXIA
     Route: 048
     Dates: start: 20100201, end: 20100503
  2. IRON SUPPLEMENTS [Concomitant]
     Indication: ILL-DEFINED DISORDER
     Dates: start: 20100222, end: 20100304
  3. CHILDREN'S TYLENOL SUSPENSION [Suspect]
     Indication: EAR INFECTION
     Route: 048
     Dates: start: 20100201, end: 20100503
  4. CHILDREN'S MOTRIN [Suspect]
     Indication: EAR INFECTION
     Route: 048
     Dates: start: 20100201, end: 20100503
  5. CHILDREN'S MOTRIN [Suspect]
     Indication: PYREXIA
     Route: 048
     Dates: start: 20100201, end: 20100503

REACTIONS (2)
  - PRODUCT QUALITY ISSUE [None]
  - GASTRITIS HAEMORRHAGIC [None]
